FAERS Safety Report 5512247-1 (Version None)
Quarter: 2007Q4

REPORT INFORMATION
  Report Type: 
  Country: None (occurrence: None)
  Receive Date: 20071108
  Receipt Date: 20071108
  Transmission Date: 20080405
  Serious: Yes (Life-Threatening, Hospitalization)
  Sender: FDA-Public Use
  Company Number: None

PATIENT
  Age: 16 Year
  Sex: Female
  Weight: 102.0593 kg

DRUGS (1)
  1. NECON [Suspect]
     Indication: AMENORRHOEA
     Dosage: 1 PILL/DAY BY MOUTH TOOK FOR 1.5 YEARS
     Route: 048

REACTIONS (4)
  - BENIGN INTRACRANIAL HYPERTENSION [None]
  - DEHYDRATION [None]
  - SUPERIOR SAGITTAL SINUS THROMBOSIS [None]
  - TRANSVERSE SINUS THROMBOSIS [None]
